FAERS Safety Report 7608908-0 (Version None)
Quarter: 2011Q3

REPORT INFORMATION
  Report Type: 
  Country: None (occurrence: None)
  Receive Date: 20110714
  Receipt Date: 20110708
  Transmission Date: 20111222
  Serious: Yes (Hospitalization)
  Sender: FDA-Public Use
  Company Number: JP-PFIZER INC-2011154870

PATIENT
  Age: 18 Year
  Sex: Male

DRUGS (2)
  1. ZITHROMAX [Suspect]
     Dosage: UNK
     Route: 048
     Dates: start: 20110701, end: 20110701
  2. MUCODYNE [Suspect]
     Dosage: UNK
     Route: 048
     Dates: start: 20110701, end: 20110701

REACTIONS (1)
  - LOSS OF CONSCIOUSNESS [None]
